FAERS Safety Report 7905670-9 (Version None)
Quarter: 2011Q4

REPORT INFORMATION
  Report Type: 
  Country: None (occurrence: None)
  Receive Date: 20111110
  Receipt Date: 20111027
  Transmission Date: 20120403
  Serious: No
  Sender: FDA-Public Use
  Company Number: US-BIOGENIDEC-2011BI042479

PATIENT
  Sex: Female

DRUGS (5)
  1. TYSABRI [Suspect]
     Indication: MULTIPLE SCLEROSIS
     Route: 042
     Dates: start: 20061215, end: 20081107
  2. TYSABRI [Suspect]
     Route: 042
     Dates: start: 20100219, end: 20100525
  3. TYSABRI [Suspect]
     Route: 042
     Dates: start: 20101007, end: 20101007
  4. TYSABRI [Suspect]
     Route: 042
     Dates: start: 20110201, end: 20110201
  5. TYSABRI [Suspect]
     Route: 042
     Dates: start: 20090414, end: 20090414

REACTIONS (3)
  - JOINT RANGE OF MOTION DECREASED [None]
  - WHITE BLOOD CELL COUNT INCREASED [None]
  - MUSCULOSKELETAL PAIN [None]
